FAERS Safety Report 9291927 (Version 1)
Quarter: 2013Q2

REPORT INFORMATION
  Report Type: Spontaneous
  Country: FR (occurrence: FR)
  Receive Date: 20130516
  Receipt Date: 20130516
  Transmission Date: 20140414
  Serious: Yes (Hospitalization, Disabling)
  Sender: FDA-Public Use
  Company Number: FR-GE HEALTHCARE MEDICAL DIAGNOSTICS-VISP-NO-1305S-0611

PATIENT
  Age: 62 Year
  Sex: Male

DRUGS (11)
  1. VISIPAQUE [Suspect]
     Indication: PRODUCT USED FOR UNKNOWN INDICATION
     Dosage: DOSE NOT REPORTED
     Route: 042
     Dates: start: 20130307, end: 20130307
  2. VISIPAQUE [Suspect]
     Indication: DIAGNOSTIC PROCEDURE
  3. ASPEGIC ENFANTS [Suspect]
  4. KARDEGIC [Suspect]
     Route: 048
     Dates: start: 20130307, end: 20130307
  5. BRILIQUE [Suspect]
     Route: 048
     Dates: start: 20130307, end: 20130307
  6. LOVENOX [Suspect]
     Dates: start: 20130307
  7. ISOPTINE [Suspect]
     Dates: start: 20130307
  8. XARELTO [Suspect]
     Route: 048
     Dates: start: 20130307, end: 20130307
  9. HEPARIN CALCIQUE [Suspect]
     Dates: start: 20130307
  10. DOLIPRANE [Suspect]
  11. RISORDAN [Concomitant]
     Route: 042

REACTIONS (1)
  - Haemorrhagic stroke [Not Recovered/Not Resolved]
